FAERS Safety Report 7747724-6 (Version None)
Quarter: 2011Q3

REPORT INFORMATION
  Report Type: 
  Country: None (occurrence: None)
  Receive Date: 20110913
  Receipt Date: 20110908
  Transmission Date: 20111222
  Serious: Yes (Other)
  Sender: FDA-Public Use
  Company Number: PHFR2011GB05270

PATIENT
  Sex: Female

DRUGS (4)
  1. CUBICIN [Suspect]
     Indication: ARTHRITIS INFECTIVE
     Dosage: UNK UKN, UNK
  2. CIPROFLOXACIN [Suspect]
     Indication: OSTEOMYELITIS
     Dosage: UNK UKN, UNK
  3. CIPROFLOXACIN [Suspect]
     Indication: ARTHRITIS INFECTIVE
  4. CUBICIN [Suspect]
     Indication: OSTEOMYELITIS

REACTIONS (1)
  - NEUROPATHY PERIPHERAL [None]
